FAERS Safety Report 6905733-0 (Version None)
Quarter: 2010Q3

REPORT INFORMATION
  Report Type: 
  Country: None (occurrence: None)
  Receive Date: 20100730
  Receipt Date: 20100713
  Transmission Date: 20110219
  Serious: Yes (Hospitalization, Other)
  Sender: FDA-Public Use
  Company Number: 2009S1003771

PATIENT
  Age: 57 Year
  Sex: Female
  Weight: 77.3837 kg

DRUGS (1)
  1. PHOSPHOSODA FLAVOR NOT SPECIFIED [Suspect]
     Indication: COLONOSCOPY
     Dosage: ; PO
     Route: 048
     Dates: start: 20070225, end: 20070225

REACTIONS (2)
  - DIALYSIS [None]
  - RENAL FAILURE CHRONIC [None]
